FAERS Safety Report 4310136-1 (Version None)
Quarter: 2004Q1

REPORT INFORMATION
  Report Type: 
  Country: None (occurrence: None)
  Receive Date: 20040301
  Receipt Date: 20031125
  Transmission Date: 20041129
  Serious: No
  Sender: FDA-Public Use
  Company Number: WAES 0311USA02835

PATIENT
  Age: 59 Year
  Sex: Female

DRUGS (2)
  1. ZETIA [Suspect]
     Indication: BLOOD CHOLESTEROL INCREASED
     Dosage: 10 MG DAILY PO
     Route: 048
     Dates: start: 20031017, end: 20031124
  2. ATENOLOL [Concomitant]

REACTIONS (3)
  - ERYTHEMA [None]
  - HYPERSENSITIVITY [None]
  - PARAESTHESIA [None]
